FAERS Safety Report 5448274-2 (Version None)
Quarter: 2007Q3

REPORT INFORMATION
  Report Type: 
  Country: None (occurrence: None)
  Receive Date: 20070911
  Receipt Date: 20070831
  Transmission Date: 20080115
  Serious: Yes (Hospitalization)
  Sender: FDA-Public Use
  Company Number: PHEH2007US11252

PATIENT
  Age: 52 Year
  Sex: Male

DRUGS (10)
  1. GLEEVEC [Suspect]
     Indication: CHRONIC MYELOID LEUKAEMIA
     Dosage: 200MG -300 MG, QD
     Route: 048
     Dates: start: 20000301, end: 20070401
  2. GLEEVEC [Suspect]
     Dosage: UNK, QD
     Route: 048
     Dates: start: 20070701, end: 20070701
  3. ALTACE [Concomitant]
     Indication: HYPERTENSION
     Dosage: 5 MG, QD
     Route: 048
  4. ZOCOR [Concomitant]
     Indication: HYPERCHOLESTEROLAEMIA
     Dosage: 40 MG, QD
     Route: 048
  5. NEXIUM [Concomitant]
     Indication: GASTROOESOPHAGEAL REFLUX DISEASE
     Dosage: 40 MG, QD
     Route: 048
  6. LEXAPRO [Concomitant]
     Indication: DEPRESSION
     Dosage: 10 MG, QD
     Route: 048
  7. XANAX [Concomitant]
     Indication: ANXIETY
     Dosage: 0.5 MG, BID
     Route: 048
  8. QUININE [Concomitant]
     Indication: MUSCLE SPASMS
     Dosage: 325 MG, PRN
     Route: 048
  9. AMITRIPTYLINE HCL [Concomitant]
     Indication: HEADACHE
     Dosage: 25 MG, QHS
     Route: 048
  10. PERCOCET [Concomitant]
     Indication: PAIN
     Dosage: 1-2 DF PRN
     Route: 048

REACTIONS (6)
  - ARTHRALGIA [None]
  - ARTHROPOD BITE [None]
  - BLOOD COUNT ABNORMAL [None]
  - HYPERGLYCAEMIA [None]
  - PYREXIA [None]
  - RASH [None]
